FAERS Safety Report 5156354-4 (Version None)
Quarter: 2006Q4

REPORT INFORMATION
  Report Type: 
  Country: None (occurrence: None)
  Receive Date: 20061122
  Receipt Date: 20061115
  Transmission Date: 20070319
  Serious: Yes (Hospitalization)
  Sender: FDA-Public Use
  Company Number: JP-MERCK-0611USA05425

PATIENT
  Age: 85 Year
  Sex: Female

DRUGS (15)
  1. STROMECTOL [Suspect]
     Indication: ACARODERMATITIS
     Route: 048
     Dates: start: 20061027, end: 20061027
  2. STROMECTOL [Suspect]
     Route: 048
     Dates: start: 20061020, end: 20061020
  3. [THERAPY UNSPECIFIED] [Concomitant]
     Indication: ACARODERMATITIS
     Route: 065
  4. PREDONINE [Concomitant]
     Indication: VASCULITIS
     Route: 048
     Dates: start: 20060906
  5. BENET [Concomitant]
     Indication: OSTEOPOROSIS
     Route: 048
     Dates: start: 20060920
  6. PARIET [Concomitant]
     Indication: GASTRIC ULCER
     Route: 048
     Dates: start: 20060920
  7. JUVELA NICOTINATE [Concomitant]
     Indication: HYPERLIPIDAEMIA
     Route: 048
  8. EPADEL [Concomitant]
     Indication: HYPERLIPIDAEMIA
     Route: 048
  9. SELBEX [Concomitant]
     Indication: GASTRITIS
     Route: 048
  10. TRANSAMIN [Concomitant]
     Route: 048
  11. ADONA [Concomitant]
     Route: 048
  12. CINAL [Concomitant]
     Route: 048
  13. DEPAS [Concomitant]
     Route: 048
  14. ALOSENN [Concomitant]
     Indication: CONSTIPATION
     Route: 048
  15. ADALAT [Concomitant]
     Indication: HYPERTENSION
     Route: 048

REACTIONS (1)
  - PURPURA [None]
